FAERS Safety Report 10889028 (Version 1)
Quarter: 2015Q1

REPORT INFORMATION
  Report Type: Spontaneous
  Country: NL (occurrence: NL)
  Receive Date: 20150305
  Receipt Date: 20150305
  Transmission Date: 20150721
  Serious: Yes (Hospitalization)
  Sender: FDA-Public Use
  Company Number: NL-TEVA-544982ISR

PATIENT
  Age: 67 Year
  Sex: Female
  Weight: 73 kg

DRUGS (2)
  1. METHOTREXATE (METHOTREXATE SODIUM) [Suspect]
     Active Substance: METHOTREXATE SODIUM
     Indication: PSORIATIC ARTHROPATHY
     Dosage: 25 MILLIGRAM DAILY; ONE DAILY ONE PIECE, EXTRA INFO: 25 MG
     Route: 058
     Dates: start: 19980101, end: 20150220
  2. ETANERCEPT INJVLST 50MG/ML [Interacting]
     Active Substance: ETANERCEPT
     Indication: PSORIATIC ARTHROPATHY
     Dosage: 50 MILLIGRAM DAILY; ONE DAILY ONE PIECE, EXTRA INFO: 50 MG
     Route: 058
     Dates: start: 20080810, end: 20150210

REACTIONS (2)
  - Drug interaction [Not Recovered/Not Resolved]
  - Pancreatic carcinoma [Not Recovered/Not Resolved]

NARRATIVE: CASE EVENT DATE: 20150219
